FAERS Safety Report 6031060-2 (Version None)
Quarter: 2009Q1

REPORT INFORMATION
  Report Type: 
  Country: None (occurrence: None)
  Receive Date: 20090108
  Receipt Date: 20090105
  Transmission Date: 20090719
  Serious: Yes (Death, Life-Threatening, Hospitalization)
  Sender: FDA-Public Use
  Company Number: US-BRISTOL-MYERS SQUIBB COMPANY-14417919

PATIENT
  Age: 72 Year
  Sex: Female
  Weight: 37 kg

DRUGS (16)
  1. CETUXIMAB [Suspect]
     Indication: PANCREATIC CARCINOMA
     Dosage: 400MG/M2 10SEP08,250MG/M2 17SEP08,24SEP,14OCT,21OCT,29OCT,05NOV08(CYCLE 5DAY 1 OF PALLANED 6CYCLE)
     Route: 042
     Dates: start: 20081105, end: 20081105
  2. OXALIPLATIN [Suspect]
     Indication: PANCREATIC CARCINOMA
     Dosage: DOSE-100MG/M2: 10SEP2008 TO 14OCT2008; REDUCED-85 MG/M2 14OCT2008, (LOT:980857,EXP DATE: MAY09)
     Route: 042
     Dates: start: 20081030, end: 20081030
  3. GEMCITABINE [Suspect]
     Indication: PANCREATIC CARCINOMA
     Dosage: DOSE: 1000MG/M2 10SEP08-14OCT08, REDUCED TO 800 MG/M2 ON 14OCT08
     Route: 042
     Dates: start: 20081029, end: 20081029
  4. PERCOCET [Concomitant]
     Dosage: 1 DF= 5/325 MG 1 TABLET EVERY SIX HOURS PRN
     Dates: start: 20081111
  5. LOMOTIL [Concomitant]
     Dosage: FORM :TABS  1 TABLET AS NEEDED TAKE 2 TAB AFTER EACH BM UP TO A MAX OF 8 WITHIN A 24HRS PERIOD
  6. LOPERAMIDE HCL [Concomitant]
     Dosage: TAKE 2 CAPS FOR FIRST DOSE,THEN 1 CAP AFTER EACH EPISODE OF DIARRHEA
     Dates: start: 20081015
  7. MS CONTIN [Concomitant]
     Dates: start: 20081008
  8. MORPHINE SULFATE [Concomitant]
     Dosage: FORM : TABLET
     Dates: start: 20081008
  9. K-TAB [Concomitant]
     Dosage: FORMULATION: TABLET
  10. DIOVAN [Concomitant]
     Dosage: 1 DF= 160/25
     Dates: start: 20081008
  11. CRESTOR [Concomitant]
     Dosage: FORMULATION: TABLET
     Dates: start: 20081008
  12. AMLODIPINE [Concomitant]
     Dates: start: 20081008
  13. ZOFRAN [Concomitant]
     Indication: NAUSEA
     Dosage: THREE TIMES DAILY PRN
     Dates: start: 20080910
  14. TRAMADOL HCL [Concomitant]
     Dosage: 1 EVERY 6 HOURS PRN
     Dates: start: 20080827
  15. SERTRALINE HCL [Concomitant]
     Dates: start: 20080827
  16. OMEPRAZOLE [Concomitant]

REACTIONS (9)
  - ACUTE RESPIRATORY DISTRESS SYNDROME [None]
  - BLOOD POTASSIUM DECREASED [None]
  - FALL [None]
  - FOREARM FRACTURE [None]
  - METABOLIC ACIDOSIS [None]
  - NEOPLASM PROGRESSION [None]
  - PLEURAL EFFUSION [None]
  - PULMONARY OEDEMA [None]
  - RESPIRATORY FAILURE [None]
